FAERS Safety Report 8794282 (Version 1)
Quarter: 2012Q4

REPORT INFORMATION
  Report Type: 
  Country: US (occurrence: US)
  Receive Date: 20120918
  Receipt Date: 20120918
  Transmission Date: 20130627
  Serious: Yes (Hospitalization, Other)
  Sender: FDA-Public Use
  Company Number: US-AMGEN-USASP2012058279

PATIENT
  Age: 68 Year
  Sex: Male

DRUGS (1)
  1. ENBREL [Suspect]
     Indication: PSORIATIC ARTHROPATHY
     Dosage: UNK
     Route: 058
     Dates: start: 20100615, end: 20120612

REACTIONS (8)
  - Cartilage injury [Recovered/Resolved]
  - Brain hypoxia [Unknown]
  - Gastrointestinal sounds abnormal [Not Recovered/Not Resolved]
  - Colon injury [Recovered/Resolved]
  - Amnesia [Unknown]
  - Diplopia [Recovered/Resolved]
  - Migraine with aura [Recovered/Resolved]
  - Blood pressure abnormal [Recovered/Resolved]
